FAERS Safety Report 24416962 (Version 1)
Quarter: 2024Q4

REPORT INFORMATION
  Report Type: Spontaneous
  Country: US (occurrence: US)
  Receive Date: 20241009
  Receipt Date: 20241009
  Transmission Date: 20250115
  Serious: Yes (Other)
  Sender: BIOVITRUM
  Company Number: US-BIOVITRUM-2024-US-012818

PATIENT
  Age: 5 Week
  Sex: Female

DRUGS (1)
  1. ANAKINRA [Suspect]
     Active Substance: ANAKINRA
     Indication: Mevalonate kinase deficiency
     Dosage: 1-3 MG/KG/DAY, TITRATED UP TO 5 MG/KG/DAY

REACTIONS (2)
  - Off label use [Unknown]
  - Drug dependence [Unknown]
